FAERS Safety Report 10820951 (Version 1)
Quarter: 2015Q1

REPORT INFORMATION
  Report Type: Spontaneous
  Country: BR (occurrence: None)
  Receive Date: 20150213
  Receipt Date: 20150213
  Transmission Date: 20150721
  Serious: Yes (Other)
  Sender: FDA-Public Use
  Company Number: BR-20150002

PATIENT
  Age: 70 Year
  Sex: Male
  Weight: 70 kg

DRUGS (1)
  1. HEXABRIX [Suspect]
     Active Substance: IOXAGLATE MEGLUMINE\IOXAGLATE SODIUM
     Indication: VENOGRAM
     Dosage: (NOT OTHERWISE SPECIFIED)
     Route: 042
     Dates: start: 20150114, end: 20150114

REACTIONS (4)
  - Skin irritation [None]
  - Hypersensitivity [None]
  - Eyelid oedema [None]
  - Face oedema [None]

NARRATIVE: CASE EVENT DATE: 20150114
